FAERS Safety Report 16702934 (Version 2)
Quarter: 2019Q3

REPORT INFORMATION
  Report Type: Report from Study
  Country: JP (occurrence: JP)
  Receive Date: 20190814
  Receipt Date: 20190918
  Transmission Date: 20191004
  Serious: Yes (Life-Threatening, Hospitalization)
  Sender: FDA-Public Use
  Company Number: JP-PFIZER INC-2019341512

PATIENT
  Age: 81 Year
  Sex: Female
  Weight: 51 kg

DRUGS (8)
  1. MUCOSTA [Concomitant]
     Active Substance: REBAMIPIDE
     Route: 048
  2. CELECOX [Concomitant]
     Active Substance: CELECOXIB
     Route: 048
  3. JANUVIA [Concomitant]
     Active Substance: SITAGLIPTIN PHOSPHATE
     Route: 048
  4. BLOPRESS [Concomitant]
     Active Substance: CANDESARTAN CILEXETIL
     Route: 048
  5. FOLIAMIN [Concomitant]
     Active Substance: FOLIC ACID
     Route: 048
  6. ACINON [NIZATIDINE] [Concomitant]
     Route: 048
  7. AMLODINE [AMLODIPINE BESILATE] [Concomitant]
     Route: 048
  8. XELJANZ [Suspect]
     Active Substance: TOFACITINIB CITRATE
     Indication: RHEUMATOID ARTHRITIS
     Dosage: 5 MG, 2X/DAY
     Dates: start: 20161226

REACTIONS (1)
  - Colon cancer [Unknown]

NARRATIVE: CASE EVENT DATE: 201806
